FAERS Safety Report 17508151 (Version 1)
Quarter: 2020Q1

REPORT INFORMATION
  Report Type: Spontaneous
  Country: RU (occurrence: RU)
  Receive Date: 20200306
  Receipt Date: 20200306
  Transmission Date: 20200409
  Serious: Yes (Life-Threatening)
  Sender: FDA-Public Use
  Company Number: RU-TEVA-2020-RU-1193413

PATIENT
  Age: 30 Year
  Sex: Female
  Weight: 85 kg

DRUGS (2)
  1. CONVULEX (VALPROIC ACID) [Suspect]
     Active Substance: VALPROIC ACID
     Dosage: DAILY DOSE 200 / 200 / 200 MG
     Route: 048
  2. TOPSAVER (TOPIRAMATE) [Suspect]
     Active Substance: TOPIRAMATE
     Dosage: DAILY DOSE 200 / 200 / 200 MG
     Route: 048

REACTIONS (4)
  - Disease progression [Recovering/Resolving]
  - Vomiting [Recovering/Resolving]
  - Abdominal pain upper [Recovering/Resolving]
  - Nausea [Recovering/Resolving]
